FAERS Safety Report 20165554 (Version 3)
Quarter: 2024Q2

REPORT INFORMATION
  Report Type: Report from Study
  Country: US (occurrence: US)
  Receive Date: 20211209
  Receipt Date: 20240425
  Transmission Date: 20240715
  Serious: Yes (Hospitalization)
  Sender: FDA-Public Use
  Company Number: US-GW PHARMA-202112USGW06017

PATIENT
  Sex: Male
  Weight: 5.3 kg

DRUGS (7)
  1. EPIDIOLEX [Suspect]
     Active Substance: CANNABIDIOL
     Indication: Idiopathic generalised epilepsy
     Dosage: 9.43 MG/KG/DAY, 25 MILLIGRAM, BID
     Dates: start: 20211110, end: 202111
  2. EPIDIOLEX [Suspect]
     Active Substance: CANNABIDIOL
     Indication: Epilepsy
     Dosage: 18.87 MG/KG/DAY, 50 MILLIGRAM, BID
     Dates: start: 202111, end: 202111
  3. EPIDIOLEX [Suspect]
     Active Substance: CANNABIDIOL
     Indication: Lennox-Gastaut syndrome
     Dosage: 22.64 MG/KG/DAY, 60 MILLIGRAM, BID
     Dates: start: 2021
  4. EPIDIOLEX [Suspect]
     Active Substance: CANNABIDIOL
     Indication: Infantile spasms
     Dosage: 1.5 ML VIA G TUBE EVERY MORNING AND 3 ML IN THE EVENING
     Dates: start: 202111
  5. EPIDIOLEX [Suspect]
     Active Substance: CANNABIDIOL
     Indication: Seizure
     Dosage: UNK
  6. EPIDIOLEX [Suspect]
     Active Substance: CANNABIDIOL
     Indication: Seizure
  7. VIGABATRIN [Concomitant]
     Active Substance: VIGABATRIN

REACTIONS (8)
  - Hospitalisation [Not Recovered/Not Resolved]
  - Weight increased [Unknown]
  - Nasopharyngitis [Unknown]
  - Prescribed overdose [Unknown]
  - Emergency care [Unknown]
  - Drug ineffective for unapproved indication [Unknown]
  - Product use in unapproved indication [Unknown]
  - Product administered to patient of inappropriate age [Unknown]

NARRATIVE: CASE EVENT DATE: 20210101
